FAERS Safety Report 10219990 (Version 1)
Quarter: 2014Q1

REPORT INFORMATION
  Report Type: Spontaneous
  Country: US (occurrence: None)
  Receive Date: 20140306
  Receipt Date: 20140306
  Transmission Date: 20141002
  Serious: Yes (Other)
  Sender: FDA-Public Use
  Company Number: 163-21880-12090328

PATIENT
  Age: 68 Year
  Sex: Female
  Weight: 55.3 kg

DRUGS (8)
  1. REVLIMID [Suspect]
     Indication: PLASMA CELL MYELOMA
     Route: 048
     Dates: start: 20120210
  2. LISINOPRIL (LISINOPRIL) (CAPSULES) [Concomitant]
  3. PERCOCET (OXYCOCET) [Concomitant]
  4. LAXATIVE (SENNOSIDE A+B) (TABLETS) [Concomitant]
  5. LORAZEPAM (LORAZEPAM) (TABLETS) [Concomitant]
  6. TYLENOL EXTRA STRENGTH (PARACETAMOL) [Concomitant]
  7. MUCINEX D [Concomitant]
  8. MEGACE (MEGESTROL ACETATE) [Concomitant]

REACTIONS (3)
  - Hot flush [None]
  - Hyperhidrosis [None]
  - Insomnia [None]
